FAERS Safety Report 10063078 (Version 1)
Quarter: 2014Q2

REPORT INFORMATION
  Report Type: Spontaneous
  Country: ES (occurrence: ES)
  Receive Date: 20140407
  Receipt Date: 20140407
  Transmission Date: 20141212
  Serious: Yes (Other)
  Sender: FDA-Public Use
  Company Number: ES-BAXTER-2014BAX016586

PATIENT
  Age: 63 Year
  Sex: Female

DRUGS (6)
  1. KIOVIG 100 MG/ML SOLUCI?N PARA PERFUSI?N 20G/200ML [Suspect]
     Indication: IMMUNOSUPPRESSANT DRUG THERAPY
     Dosage: 0.25 G/KG
     Route: 042
  2. KIOVIG 100 MG/ML SOLUCI?N PARA PERFUSI?N 20G/200ML [Suspect]
     Indication: OFF LABEL USE
     Dosage: 1 G/KG
     Route: 042
  3. DACORTIN [Suspect]
     Indication: IMMUNOSUPPRESSANT DRUG THERAPY
     Route: 065
  4. CELLCEPT [Suspect]
     Indication: IMMUNOSUPPRESSANT DRUG THERAPY
     Route: 065
  5. PROGRAF [Suspect]
     Indication: IMMUNOSUPPRESSANT DRUG THERAPY
     Route: 065
  6. METHYLPREDNISOLONE [Suspect]
     Indication: IMMUNOSUPPRESSANT DRUG THERAPY
     Route: 040

REACTIONS (1)
  - Drug ineffective [Unknown]
